FAERS Safety Report 15768594 (Version 1)
Quarter: 2018Q4

REPORT INFORMATION
  Report Type: Spontaneous
  Country: US (occurrence: US)
  Receive Date: 20181227
  Receipt Date: 20181227
  Transmission Date: 20190205
  Serious: No
  Sender: FDA-Public Use
  Company Number: US-JNJFOC-20181139918

PATIENT
  Sex: Male

DRUGS (12)
  1. IMBRUVICA [Suspect]
     Active Substance: IBRUTINIB
     Indication: CHRONIC LYMPHOCYTIC LEUKAEMIA
     Route: 048
  2. LIPITOR [Concomitant]
     Active Substance: ATORVASTATIN CALCIUM
  3. TUMS [Concomitant]
     Active Substance: CALCIUM CARBONATE
  4. BACTRIM [Concomitant]
     Active Substance: SULFAMETHOXAZOLE\TRIMETHOPRIM
     Dosage: 800-160
  5. MULTIVITAMINS [Concomitant]
     Active Substance: VITAMINS
  6. PRINIVIL [Concomitant]
     Active Substance: LISINOPRIL
  7. TYLENOL [Concomitant]
     Active Substance: ACETAMINOPHEN
  8. OMEGA-3 FATTY ACIDS [Concomitant]
     Active Substance: OMEGA-3 FATTY ACIDS
  9. AMOXIL [Concomitant]
     Active Substance: AMOXICILLIN
  10. ASPIRIN. [Concomitant]
     Active Substance: ASPIRIN
  11. ZESTRIL [Concomitant]
     Active Substance: LISINOPRIL
  12. ZOVIRAX [Concomitant]
     Active Substance: ACYCLOVIR

REACTIONS (7)
  - Off label use [Unknown]
  - Incorrect dose administered [Unknown]
  - Hyperlipidaemia [Unknown]
  - Haemorrhoids [Unknown]
  - Diverticulum [Unknown]
  - Essential hypertension [Unknown]
  - Colon adenoma [Unknown]
